FAERS Safety Report 7156561-5 (Version None)
Quarter: 2010Q4

REPORT INFORMATION
  Report Type: 
  Country: None (occurrence: None)
  Receive Date: 20101214
  Receipt Date: 20091110
  Transmission Date: 20110411
  Serious: No
  Sender: FDA-Public Use
  Company Number: US-ASTRAZENECA-2009SE25728

PATIENT
  Age: 76 Year
  Sex: Female
  Weight: 65.3 kg

DRUGS (2)
  1. CRESTOR [Suspect]
     Route: 048
  2. LISINOPRIL [Concomitant]
     Indication: BLOOD PRESSURE

REACTIONS (1)
  - FLUSHING [None]
